FAERS Safety Report 4922019-4 (Version None)
Quarter: 2006Q1

REPORT INFORMATION
  Report Type: 
  Country: None (occurrence: None)
  Receive Date: 20060224
  Receipt Date: 20051123
  Transmission Date: 20060701
  Serious: Yes (Hospitalization)
  Sender: FDA-Public Use
  Company Number: BE-SANOFI-SYNTHELABO-A01200508253

PATIENT
  Sex: Male
  Weight: 98 kg

DRUGS (10)
  1. ELOXATIN [Suspect]
     Indication: COLON CANCER
     Route: 041
     Dates: start: 20050928, end: 20050928
  2. ELOXATIN [Suspect]
     Route: 041
     Dates: start: 20051012, end: 20051012
  3. ELOXATIN [Suspect]
     Route: 041
     Dates: start: 20051026, end: 20051026
  4. ELOXATIN [Suspect]
     Route: 041
     Dates: start: 20051114, end: 20051114
  5. ZYLORIC [Concomitant]
     Indication: GOUT
     Route: 048
     Dates: start: 20050101
  6. FOLAVIT [Concomitant]
     Indication: HAEMOLYTIC ANAEMIA
     Route: 048
     Dates: start: 20050901
  7. NOVABAN [Concomitant]
     Indication: VOMITING
     Dosage: ONE AMPULE DAILY
     Route: 042
     Dates: start: 20050928
  8. LITICAN [Concomitant]
     Indication: VOMITING
     Dosage: ONE AMPULE DAILY
     Route: 042
     Dates: start: 20050928
  9. MEDROL [Concomitant]
     Indication: PROPHYLAXIS
     Route: 048
     Dates: start: 20051115
  10. FORTANEURIN [Concomitant]
     Indication: HAEMOLYTIC ANAEMIA
     Dosage: UNK
     Route: 030
     Dates: start: 20050101

REACTIONS (13)
  - ALPHA HAEMOLYTIC STREPTOCOCCAL INFECTION [None]
  - CHILLS [None]
  - DYSPNOEA [None]
  - GENERAL PHYSICAL HEALTH DETERIORATION [None]
  - HAEMOLYTIC ANAEMIA [None]
  - HYPERSENSITIVITY [None]
  - JAUNDICE [None]
  - NAUSEA [None]
  - OCULAR ICTERUS [None]
  - PARAESTHESIA [None]
  - PYREXIA [None]
  - SEDATION [None]
  - VOMITING [None]
